FAERS Safety Report 4885426-4 (Version None)
Quarter: 2005Q4

REPORT INFORMATION
  Report Type: 
  Country: None (occurrence: None)
  Receive Date: 20051220
  Receipt Date: 20050314
  Transmission Date: 20060501
  Serious: Yes (Other)
  Sender: FDA-Public Use
  Company Number: HQWYE142115MAR05

PATIENT
  Age: 54 Year
  Sex: Male

DRUGS (5)
  1. EFFEXOR XR [Suspect]
     Indication: OBSESSIVE-COMPULSIVE DISORDER
     Dosage: 187.5 MG 1X PER 1 DAY, ORAL
     Route: 048
  2. LISINOPRIL [Concomitant]
  3. ZOCOR [Concomitant]
  4. KLONOPIN [Concomitant]
  5. ATENOLOL [Concomitant]

REACTIONS (3)
  - CONFUSIONAL STATE [None]
  - DRUG WITHDRAWAL SYNDROME [None]
  - OBSESSIVE-COMPULSIVE DISORDER [None]
